FAERS Safety Report 5878931-5 (Version None)
Quarter: 2008Q3

REPORT INFORMATION
  Report Type: 
  Country: None (occurrence: None)
  Receive Date: 20080910
  Receipt Date: 20080910
  Transmission Date: 20090109
  Serious: Yes (Hospitalization)
  Sender: FDA-Public Use
  Company Number: None

PATIENT
  Sex: Female
  Weight: 60 kg

DRUGS (1)
  1. CISPLATIN [Suspect]
     Dosage: 40 MG

REACTIONS (5)
  - BLOOD SODIUM DECREASED [None]
  - CONFUSIONAL STATE [None]
  - DYSPNOEA [None]
  - DYSURIA [None]
  - RENAL FAILURE ACUTE [None]
